FAERS Safety Report 8779900 (Version 1)
Quarter: 2012Q4

REPORT INFORMATION
  Report Type: 
  Country: US (occurrence: US)
  Receive Date: 20120912
  Receipt Date: 20120912
  Transmission Date: 20130627
  Serious: No
  Sender: FDA-Public Use
  Company Number: US-VERTEX PHARMACEUTICAL INC.-AE-2012-005932

PATIENT
  Age: 54 Year
  Sex: Male
  Weight: 73.64 kg

DRUGS (5)
  1. INCIVEK [Suspect]
     Indication: HEPATITIS C
     Route: 048
     Dates: start: 20120417
  2. RIBAVIRIN [Concomitant]
     Indication: HEPATITIS C
     Route: 048
     Dates: start: 20120417
  3. PEGASYS [Concomitant]
     Indication: HEPATITIS C
     Route: 058
     Dates: start: 20120417
  4. IBUPROFEN [Concomitant]
     Indication: PAIN
     Route: 048
  5. XANAX [Concomitant]
     Indication: ANXIETY
     Route: 048

REACTIONS (8)
  - Insomnia [Not Recovered/Not Resolved]
  - Feeling of body temperature change [Recovered/Resolved]
  - Skin burning sensation [Not Recovered/Not Resolved]
  - Constipation [Not Recovered/Not Resolved]
  - Bedridden [Not Recovered/Not Resolved]
  - Rash papular [Not Recovered/Not Resolved]
  - Blister [Not Recovered/Not Resolved]
  - Diarrhoea [Not Recovered/Not Resolved]
